FAERS Safety Report 18718834 (Version 3)
Quarter: 2022Q1

REPORT INFORMATION
  Report Type: Spontaneous
  Country: US (occurrence: US)
  Receive Date: 20210108
  Receipt Date: 20220308
  Transmission Date: 20220424
  Serious: No
  Sender: FDA-Public Use
  Company Number: US-PFIZER INC-2020463981

PATIENT
  Age: 39 Year
  Sex: Female

DRUGS (1)
  1. XELJANZ XR [Suspect]
     Active Substance: TOFACITINIB CITRATE
     Indication: Rheumatoid arthritis
     Dosage: 11 MG, 1X/DAY,DAILY
     Route: 048
     Dates: start: 20201105

REACTIONS (4)
  - Arthritis [Unknown]
  - Drug ineffective [Unknown]
  - Oedema peripheral [Unknown]
  - Ligament rupture [Unknown]

NARRATIVE: CASE EVENT DATE: 20210101
